FAERS Safety Report 8180986-2 (Version None)
Quarter: 2012Q1

REPORT INFORMATION
  Report Type: 
  Country: None (occurrence: None)
  Receive Date: 20120302
  Receipt Date: 20120221
  Transmission Date: 20120608
  Serious: Yes (Life-Threatening, Hospitalization)
  Sender: FDA-Public Use
  Company Number: ES-CELGENEUS-144-21880-11081157

PATIENT
  Sex: Male
  Weight: 85 kg

DRUGS (15)
  1. FUROSEMIDE [Concomitant]
     Dosage: 20 MILLIGRAM
     Route: 041
     Dates: start: 20110812, end: 20110812
  2. MIDAZOLAM HCL [Concomitant]
     Indication: ANAESTHESIA
     Dosage: 2.5 MILLIGRAM
     Route: 041
     Dates: start: 20110814, end: 20110814
  3. ALBUMIN (HUMAN) [Concomitant]
     Dosage: 100 MILLILITER
     Route: 041
     Dates: start: 20110815, end: 20110818
  4. REVLIMID [Suspect]
     Indication: MULTIPLE MYELOMA
     Dosage: 25 MILLIGRAM
     Route: 048
     Dates: start: 20110615, end: 20110705
  5. EPREX [Concomitant]
     Route: 041
     Dates: start: 20110712
  6. ASPIRIN [Concomitant]
     Indication: ANTICOAGULANT THERAPY
     Dosage: 100 MILLIGRAM
     Route: 048
     Dates: start: 20110712, end: 20110916
  7. ASPIRIN [Concomitant]
     Indication: ANTIPLATELET THERAPY
  8. DEXAMETHASONE [Suspect]
     Indication: MULTIPLE MYELOMA
     Dosage: 40 MILLIGRAM
     Route: 065
     Dates: start: 20110615, end: 20110706
  9. REVLIMID [Suspect]
     Dosage: 25 MILLIGRAM
     Route: 048
     Dates: start: 20110713, end: 20110802
  10. LANSOPRAZOLE [Concomitant]
     Indication: GASTRITIS PROPHYLAXIS
     Dosage: 15 MILLIGRAM
     Route: 048
     Dates: start: 20110712, end: 20110916
  11. FUROSEMIDE [Concomitant]
     Dosage: 40 MILLIGRAM
     Route: 048
     Dates: start: 20110814, end: 20110822
  12. DEXAMETHASONE [Suspect]
     Dosage: 40 MILLIGRAM
     Route: 065
     Dates: start: 20110713, end: 20110803
  13. CIPROFLOXACIN [Concomitant]
     Indication: ANTIBIOTIC PROPHYLAXIS
     Dosage: 500 MILLIGRAM
     Route: 048
     Dates: start: 20110712, end: 20110916
  14. NOCTAMID [Concomitant]
     Dosage: 1 MILLIGRAM
     Route: 048
  15. SANDOZ CALCIUM [Concomitant]
     Indication: OSTEOPOROSIS PROPHYLAXIS
     Dosage: 500 MILLIGRAM
     Route: 048

REACTIONS (3)
  - INTERSTITIAL LUNG DISEASE [None]
  - ANAEMIA [None]
  - PYREXIA [None]
